FAERS Safety Report 4357089-8 (Version None)
Quarter: 2004Q2

REPORT INFORMATION
  Report Type: 
  Country: None (occurrence: None)
  Receive Date: 20040507
  Receipt Date: 20040427
  Transmission Date: 20050107
  Serious: Yes (Life-Threatening, Hospitalization, Other)
  Sender: FDA-Public Use
  Company Number: 2004013031

PATIENT
  Age: 79 Year
  Sex: Female
  Weight: 66 kg

DRUGS (2)
  1. UNASYN [Suspect]
     Indication: INFECTION PROPHYLAXIS
     Dosage: 1.5 GRAM (1 IN 1 D), INTRAVENOUS
     Route: 042
     Dates: start: 20040224, end: 20040224
  2. ROPIVACAINE HYDROCHLORIDE (ROPIVACAINE HYDROCHLORIDE) [Suspect]
     Indication: EPIDURAL ANAESTHESIA
     Dosage: 11.25 MG (1 IN 1 D), EPIDURAL
     Route: 008
     Dates: start: 20040224, end: 20040224

REACTIONS (6)
  - ANAPHYLACTIC SHOCK [None]
  - BLOOD PRESSURE SYSTOLIC DECREASED [None]
  - HAEMOGLOBIN DECREASED [None]
  - HOT FLUSH [None]
  - PULSE ABSENT [None]
  - SKIN TEST POSITIVE [None]
